FAERS Safety Report 14224834 (Version 1)
Quarter: 2017Q4

REPORT INFORMATION
  Report Type: Spontaneous
  Country: US (occurrence: US)
  Receive Date: 20171127
  Receipt Date: 20171127
  Transmission Date: 20180321
  Serious: No
  Sender: FDA-Public Use
  Company Number: US-AUROBINDO-AUR-APL-2015-08796

PATIENT
  Age: 22 Year
  Sex: Male

DRUGS (2)
  1. GABAPENTIN TABLETS USP 800MG [Suspect]
     Active Substance: GABAPENTIN
     Indication: NERVE INJURY
     Dosage: 4 DF, DAILY
     Route: 048
     Dates: start: 20150923, end: 20150929
  2. CLONAZEPAM. [Concomitant]
     Active Substance: CLONAZEPAM
     Indication: PRODUCT USED FOR UNKNOWN INDICATION
     Dosage: 1 MG, UNK
     Route: 065

REACTIONS (4)
  - Anxiety [None]
  - Product physical issue [None]
  - Poor quality drug administered [None]
  - Product physical issue [Unknown]

NARRATIVE: CASE EVENT DATE: 20150923
